FAERS Safety Report 4988819-X (Version None)
Quarter: 2006Q2

REPORT INFORMATION
  Report Type: 
  Country: None (occurrence: None)
  Receive Date: 20060502
  Receipt Date: 20051220
  Transmission Date: 20061013
  Serious: Yes (Hospitalization, Disabling, Other)
  Sender: FDA-Public Use
  Company Number: US-MERCK-0512USA03258

PATIENT
  Age: 68 Year
  Sex: Male
  Weight: 68 kg

DRUGS (2)
  1. VIOXX [Suspect]
     Indication: BACK PAIN
     Route: 048
  2. VIOXX [Suspect]
     Indication: NECK PAIN
     Route: 048

REACTIONS (9)
  - BLOOD PRESSURE DIASTOLIC DECREASED [None]
  - BRAIN STEM INFARCTION [None]
  - DRUG INEFFECTIVE [None]
  - FALL [None]
  - GASTROOESOPHAGEAL REFLUX DISEASE [None]
  - INTERVERTEBRAL DISC DEGENERATION [None]
  - MYOCARDIAL INFARCTION [None]
  - RADICULOPATHY [None]
  - SPONDYLOLISTHESIS [None]
